FAERS Safety Report 15669304 (Version 1)
Quarter: 2018Q4

REPORT INFORMATION
  Report Type: Spontaneous
  Country: PL (occurrence: PL)
  Receive Date: 20181129
  Receipt Date: 20181129
  Transmission Date: 20190205
  Serious: Yes (Other)
  Sender: FDA-Public Use
  Company Number: PL-BRISTOL-MYERS SQUIBB COMPANY-BMS-2018-110635

PATIENT
  Age: 83 Year
  Sex: Male

DRUGS (3)
  1. NIVOLUMAB [Suspect]
     Active Substance: NIVOLUMAB
     Indication: MALIGNANT MELANOMA
     Dosage: 1 DF, Q2WK
     Route: 042
     Dates: start: 20161007
  2. NIVOLUMAB [Suspect]
     Active Substance: NIVOLUMAB
     Indication: PRODUCT USED FOR UNKNOWN INDICATION
     Dosage: 480 MG, Q4WK
     Route: 042
     Dates: start: 201804
  3. HYDROCORTISONE. [Concomitant]
     Active Substance: HYDROCORTISONE
     Indication: PRODUCT USED FOR UNKNOWN INDICATION
     Dosage: 25 MG, QD
     Route: 065
     Dates: start: 20181003

REACTIONS (8)
  - Hypokalaemia [Unknown]
  - Hyponatraemia [Unknown]
  - Fall [Unknown]
  - Head injury [Unknown]
  - General physical health deterioration [Unknown]
  - Hypophysitis [Unknown]
  - Adrenal insufficiency [Unknown]
  - Affective disorder [Unknown]

NARRATIVE: CASE EVENT DATE: 201709
